FAERS Safety Report 9378611 (Version 2)
Quarter: 2013Q3

REPORT INFORMATION
  Report Type: Spontaneous
  Country: ES (occurrence: None)
  Receive Date: 20130626
  Receipt Date: 20130705
  Transmission Date: 20140515
  Serious: Yes (Other)
  Sender: FDA-Public Use
  Company Number: 2013-2656

PATIENT
  Sex: Female

DRUGS (2)
  1. SOMATULINE AUTOGEL [Suspect]
     Indication: NEUROENDOCRINE TUMOUR
  2. ZYPREXA (OLANZAPINE) [Suspect]
     Indication: SCHIZOPHRENIA

REACTIONS (4)
  - Thrombocytopenia [None]
  - Neutropenia [None]
  - Neuroendocrine tumour [None]
  - Metastases to liver [None]
